FAERS Safety Report 4700542-5 (Version None)
Quarter: 2005Q2

REPORT INFORMATION
  Report Type: 
  Country: None (occurrence: None)
  Receive Date: 20050627
  Receipt Date: 20050627
  Transmission Date: 20051028
  Serious: No
  Sender: FDA-Public Use
  Company Number: None

PATIENT
  Age: 91 Year
  Sex: Female
  Weight: 50 kg

DRUGS (1)
  1. PROTONIX [Suspect]
     Dosage: 40 MG   ORAL
     Route: 048
     Dates: start: 20050527, end: 20050528

REACTIONS (1)
  - RASH PRURITIC [None]
